FAERS Safety Report 4621254-2 (Version None)
Quarter: 2005Q1

REPORT INFORMATION
  Report Type: 
  Country: None (occurrence: None)
  Receive Date: 20050322
  Receipt Date: 20050322
  Transmission Date: 20050727
  Serious: Yes (Death)
  Sender: FDA-Public Use
  Company Number: None

PATIENT
  Age: 16 Year
  Sex: Male
  Weight: 77.1115 kg

DRUGS (2)
  1. DULOXETINE (CYMBALTA) BY ELI LILLY [Suspect]
     Indication: DEPRESSION
     Dosage: 30 MG AND 60 MG DAILY
     Dates: start: 20041126, end: 20041224
  2. ALBUTEROL [Concomitant]

REACTIONS (4)
  - ABNORMAL BEHAVIOUR [None]
  - COMPLETED SUICIDE [None]
  - FEELING ABNORMAL [None]
  - PHOTOPHOBIA [None]
